FAERS Safety Report 6836035-9 (Version None)
Quarter: 2010Q3

REPORT INFORMATION
  Report Type: 
  Country: None (occurrence: None)
  Receive Date: 20100713
  Receipt Date: 20100706
  Transmission Date: 20110219
  Serious: Yes (Hospitalization)
  Sender: FDA-Public Use
  Company Number: B0660661A

PATIENT
  Sex: Female
  Weight: 72 kg

DRUGS (4)
  1. LAPATINIB [Suspect]
     Indication: BREAST CANCER
     Dosage: 1250MG PER DAY
     Route: 048
     Dates: start: 20100329, end: 20100511
  2. PACLITAXEL [Suspect]
     Indication: BREAST CANCER
     Dosage: 175MG PER DAY
     Route: 042
     Dates: start: 20100329, end: 20100531
  3. MYOCET [Suspect]
     Indication: BREAST CANCER
     Dosage: 60MG PER DAY
     Route: 042
     Dates: start: 20100329, end: 20100531
  4. RAMIPRIL [Concomitant]
     Dosage: 1.25MG PER DAY
     Route: 048
     Dates: start: 20100510

REACTIONS (3)
  - BILE DUCT STENOSIS [None]
  - BILIARY DILATATION [None]
  - HEPATIC ENZYME INCREASED [None]
